FAERS Safety Report 26212283 (Version 1)
Quarter: 2025Q4

REPORT INFORMATION
  Report Type: Spontaneous
  Country: CN (occurrence: CN)
  Receive Date: 20251230
  Receipt Date: 20251230
  Transmission Date: 20260118
  Serious: Yes (Hospitalization)
  Sender: ROCHE
  Company Number: CN-BoehringerIngelheim-2025-BI-116956

PATIENT
  Age: 79 Year
  Sex: Male
  Weight: 46.000 kg

DRUGS (2)
  1. ALTEPLASE [Suspect]
     Active Substance: ALTEPLASE
     Indication: Cerebral infarction
     Route: 040
     Dates: start: 20251210, end: 20251210
  2. ALTEPLASE [Suspect]
     Active Substance: ALTEPLASE
     Route: 042
     Dates: start: 20251210, end: 20251210

REACTIONS (3)
  - Blood pressure increased [Unknown]
  - Brain stem haemorrhage [Unknown]
  - Vomiting [Unknown]

NARRATIVE: CASE EVENT DATE: 20251210
